FAERS Safety Report 7978763-8 (Version None)
Quarter: 2011Q4

REPORT INFORMATION
  Report Type: 
  Country: None (occurrence: None)
  Receive Date: 20111214
  Receipt Date: 20111205
  Transmission Date: 20120403
  Serious: Yes (Hospitalization, Other)
  Sender: FDA-Public Use
  Company Number: ES-VERTEX PHARMACEUTICALS INC.-AE-2011-000494

PATIENT
  Sex: Female
  Weight: 50.9 kg

DRUGS (11)
  1. COPEGUS [Suspect]
     Indication: HEPATITIS C
     Route: 048
     Dates: start: 20110517, end: 20110714
  2. FOLIC ACID [Concomitant]
     Dates: start: 20110712
  3. VX-950 [Suspect]
     Indication: HEPATITIS C
     Route: 048
     Dates: start: 20110517, end: 20110714
  4. PEGASYS [Suspect]
     Indication: HEPATITIS C
     Route: 058
     Dates: start: 20110517, end: 20110717
  5. PEGASYS [Suspect]
     Route: 058
     Dates: start: 20110919
  6. ZOLMITRIPTAN [Concomitant]
     Indication: HEADACHE
  7. ENALAPRIL MALEATE [Concomitant]
     Indication: HYPERTENSION
  8. PREGABALIN [Concomitant]
     Indication: HEADACHE
  9. ACETAMINOPHEN [Concomitant]
     Dates: start: 20110517
  10. COPEGUS [Suspect]
     Route: 048
     Dates: start: 20110919
  11. IRON [Concomitant]
     Dates: start: 20110712

REACTIONS (4)
  - ANAEMIA [None]
  - THROMBOCYTOPENIA [None]
  - LEUKOPENIA [None]
  - NEUTROPENIA [None]
